FAERS Safety Report 10644987 (Version 3)
Quarter: 2015Q1

REPORT INFORMATION
  Report Type: Spontaneous
  Country: US (occurrence: None)
  Receive Date: 20141209
  Receipt Date: 20150121
  Transmission Date: 20150720
  Serious: Yes (Death)
  Sender: FDA-Public Use
  Company Number: 2014-US-016095

PATIENT
  Age: 87 Year
  Sex: Male

DRUGS (3)
  1. CLOZAPINE USP, ODT (CLOZAPINE, USP) TABLET, MG [Suspect]
     Active Substance: CLOZAPINE
     Indication: SCHIZOPHRENIA
     Route: 048
     Dates: start: 20141029
  2. ROXANOL [Concomitant]
     Active Substance: MORPHINE SULFATE
  3. ATIVAN [Concomitant]
     Active Substance: LORAZEPAM

REACTIONS (8)
  - Dysphagia [None]
  - Appetite disorder [None]
  - Death [None]
  - Weight fluctuation [None]
  - Dementia [None]
  - Compression fracture [None]
  - Discomfort [None]
  - Back pain [None]
